FAERS Safety Report 4867252-5 (Version None)
Quarter: 2005Q4

REPORT INFORMATION
  Report Type: 
  Country: None (occurrence: None)
  Receive Date: 20051228
  Receipt Date: 20051206
  Transmission Date: 20060501
  Serious: Yes (Hospitalization)
  Sender: FDA-Public Use
  Company Number: US-BRISTOL-MYERS SQUIBB COMPANY-13207543

PATIENT
  Age: 75 Year
  Sex: Female

DRUGS (12)
  1. CETUXIMAB [Suspect]
     Indication: NON-SMALL CELL LUNG CANCER
     Route: 042
     Dates: start: 20051201, end: 20051201
  2. CARBOPLATIN [Suspect]
     Indication: NON-SMALL CELL LUNG CANCER
     Route: 042
     Dates: start: 20051201, end: 20051201
  3. DOCETAXEL [Suspect]
     Indication: NON-SMALL CELL LUNG CANCER
     Route: 042
     Dates: start: 20051201, end: 20051201
  4. DEXAMETHASONE [Concomitant]
     Route: 048
     Dates: start: 20051130, end: 20051202
  5. ALOXI [Concomitant]
     Route: 042
     Dates: start: 20051201, end: 20051201
  6. DEXAMETHASONE [Concomitant]
     Route: 042
     Dates: start: 20051201, end: 20051201
  7. ATENOLOL [Concomitant]
     Indication: HYPERTENSION
     Route: 048
     Dates: start: 19950101
  8. HYDROCHLOROTHIAZIDE [Concomitant]
     Indication: HYPERTENSION
     Route: 048
     Dates: start: 19950101
  9. MELOXICAM [Concomitant]
     Indication: HYPERTENSION
     Route: 048
     Dates: start: 19950101
  10. DARVOCET-N 100 [Concomitant]
     Indication: SCIATICA
     Route: 048
     Dates: start: 20050801, end: 20051202
  11. ACETAMINOPHEN [Concomitant]
     Indication: SCIATICA
     Route: 048
     Dates: start: 20050801
  12. KYTRIL [Concomitant]
     Route: 048
     Dates: start: 20051202

REACTIONS (1)
  - DEHYDRATION [None]
